FAERS Safety Report 6849169-X (Version None)
Quarter: 2010Q3

REPORT INFORMATION
  Report Type: 
  Country: None (occurrence: None)
  Receive Date: 20100716
  Receipt Date: 20100712
  Transmission Date: 20110219
  Serious: Yes (Death, Other)
  Sender: FDA-Public Use
  Company Number: PHHY2010FR45529

PATIENT
  Age: 25 Year
  Sex: Male
  Weight: 45 kg

DRUGS (8)
  1. CICLOSPORIN [Suspect]
     Indication: LUNG TRANSPLANT
  2. CICLOSPORIN [Suspect]
     Indication: IMMUNOSUPPRESSION
  3. AZATHIOPRINE [Suspect]
     Indication: IMMUNOSUPPRESSION
     Dosage: 2 MG/KG, UNK
  4. STEROIDS NOS [Suspect]
     Indication: IMMUNOSUPPRESSION
     Dosage: 1 MG/KG, 1 WEEK
  5. STEROIDS NOS [Suspect]
     Dosage: 0.2 MG/KG, UNK
  6. METHYLPREDNISOLONE [Concomitant]
     Indication: LUNG TRANSPLANT
     Dosage: 500 MG, UNK
     Route: 042
  7. METHYLPREDNISOLONE [Concomitant]
     Dosage: 250 MG, SUPPLEMENTAL DOSE
  8. INSULIN [Concomitant]
     Indication: TYPE 1 DIABETES MELLITUS
     Dosage: UNK
     Route: 042

REACTIONS (9)
  - GENERAL PHYSICAL HEALTH DETERIORATION [None]
  - GRAFT LOSS [None]
  - LOWER RESPIRATORY TRACT INFECTION [None]
  - LUNG INFECTION [None]
  - LUNG TRANSPLANT [None]
  - LUNG TRANSPLANT REJECTION [None]
  - OBLITERATIVE BRONCHIOLITIS [None]
  - PANCREATIC INSUFFICIENCY [None]
  - RESPIRATORY FAILURE [None]
